FAERS Safety Report 25036767 (Version 1)
Quarter: 2025Q1

REPORT INFORMATION
  Report Type: Report from Study
  Country: KR (occurrence: KR)
  Receive Date: 20250304
  Receipt Date: 20250304
  Transmission Date: 20250409
  Serious: Yes (Hospitalization, Other)
  Sender: TAKEDA
  Company Number: KR-TAKEDA-2025TUS022196

PATIENT
  Age: 22 Year
  Sex: Male
  Weight: 68.934 kg

DRUGS (13)
  1. VEDOLIZUMAB [Suspect]
     Active Substance: VEDOLIZUMAB
     Indication: Colitis ulcerative
     Dosage: 108 MILLIGRAM, QD
     Dates: start: 20230604, end: 20240921
  2. VEDOLIZUMAB [Suspect]
     Active Substance: VEDOLIZUMAB
  3. MEPERIDINE HYDROCHLORIDE [Concomitant]
     Active Substance: MEPERIDINE HYDROCHLORIDE
     Indication: Adverse event
     Dates: start: 20240918, end: 20240924
  4. NEXIUM [Concomitant]
     Active Substance: ESOMEPRAZOLE MAGNESIUM
     Indication: Adverse event
     Dosage: 40 MILLIGRAM, BID
     Dates: start: 20240918, end: 20240920
  5. HYDROCORTISONE SODIUM SUCCINATE [Concomitant]
     Active Substance: HYDROCORTISONE SODIUM SUCCINATE
     Indication: Adverse event
     Dosage: 100 MILLIGRAM, TID
     Dates: start: 20240918, end: 20240919
  6. ATIVAN [Concomitant]
     Active Substance: LORAZEPAM
     Indication: Adverse event
     Dosage: 1 MILLIGRAM, QD
     Dates: start: 20240918, end: 20240924
  7. REMERON [Concomitant]
     Active Substance: MIRTAZAPINE
     Indication: Adverse event
     Dosage: 300 MILLIGRAM, QD
     Dates: start: 20240919, end: 20240924
  8. QUETIAPINE FUMARATE [Concomitant]
     Active Substance: QUETIAPINE FUMARATE
     Indication: Adverse event
     Dosage: 120 MILLIGRAM, QD
     Dates: start: 20240919, end: 20240924
  9. LEXAPRO [Concomitant]
     Active Substance: ESCITALOPRAM OXALATE
     Indication: Adverse event
     Dosage: 20 MILLIGRAM, QD
     Dates: start: 20240919, end: 20240924
  10. METHYLPREDNISOLONE [Concomitant]
     Active Substance: METHYLPREDNISOLONE
     Indication: Adverse event
     Dosage: 125 MILLIGRAM, QD
     Dates: start: 20240920, end: 20240924
  11. ASACOL [Concomitant]
     Active Substance: MESALAMINE
     Dosage: 500 MILLIGRAM, QD
     Dates: start: 20220507
  12. MESALAMINE [Concomitant]
     Active Substance: MESALAMINE
     Dosage: 4800 MILLIGRAM, QD
     Dates: start: 20240819
  13. PENTASA [Concomitant]
     Active Substance: MESALAMINE
     Dosage: 4000 MILLIGRAM, QD
     Dates: start: 20220519, end: 20240201

REACTIONS (1)
  - Colitis ulcerative [Recovered/Resolved]

NARRATIVE: CASE EVENT DATE: 20240912
